FAERS Safety Report 7652526-5 (Version None)
Quarter: 2011Q3

REPORT INFORMATION
  Report Type: 
  Country: None (occurrence: None)
  Receive Date: 20110722
  Receipt Date: 20101208
  Transmission Date: 20111222
  Serious: Yes (Hospitalization)
  Sender: FDA-Public Use
  Company Number: UTC-003099

PATIENT
  Age: 40 Year
  Sex: Female

DRUGS (2)
  1. REMODULIN [Suspect]
     Indication: PULMONARY HYPERTENSION
     Dosage: 72 UG/KG (0.05 UG/KG,1 IN 1 MIN),INTRAVENOUS ; 43.2 UG/KG (0.03 UG/KG,1 IN 1 MIN),INTRAVENOUS
     Route: 042
     Dates: start: 20101111
  2. REMODULIN [Suspect]
     Indication: PULMONARY HYPERTENSION
     Dosage: 72 UG/KG (0.05 UG/KG,1 IN 1 MIN),INTRAVENOUS ; 43.2 UG/KG (0.03 UG/KG,1 IN 1 MIN),INTRAVENOUS
     Route: 042
     Dates: end: 20101223

REACTIONS (1)
  - HEADACHE [None]
